FAERS Safety Report 9703542 (Version 2)
Quarter: 2013Q4

REPORT INFORMATION
  Report Type: Spontaneous
  Country: BR (occurrence: BR)
  Receive Date: 20131122
  Receipt Date: 20131205
  Transmission Date: 20140711
  Serious: Yes (Hospitalization, Other)
  Sender: FDA-Public Use
  Company Number: BR-ASTRAZENECA-2013SE84764

PATIENT
  Age: 80 Year
  Sex: Male

DRUGS (5)
  1. CRESTOR [Suspect]
     Indication: ATHEROSCLEROSIS PROPHYLAXIS
     Route: 048
  2. CRESTOR [Suspect]
     Indication: ARTERIOSCLEROSIS
     Route: 048
  3. CLOPIDOGREL [Suspect]
     Indication: PLATELET AGGREGATION INHIBITION
     Route: 048
     Dates: end: 2013
  4. SECOTEX [Concomitant]
     Indication: PROSTATIC DISORDER
  5. INSULIN [Concomitant]
     Indication: DIABETES MELLITUS
     Route: 058

REACTIONS (2)
  - Myocardial infarction [Recovered/Resolved]
  - Renal failure [Recovered/Resolved]
